FAERS Safety Report 13596302 (Version 1)
Quarter: 2017Q2

REPORT INFORMATION
  Report Type: Spontaneous
  Country: US (occurrence: US)
  Receive Date: 20170531
  Receipt Date: 20170531
  Transmission Date: 20170830
  Serious: No
  Sender: FDA-Public Use
  Company Number: US-JNJFOC-20170328465

PATIENT
  Age: 8 Month
  Sex: Male
  Weight: 9.53 kg

DRUGS (1)
  1. CHILDRENS TYLENOL [Suspect]
     Active Substance: ACETAMINOPHEN
     Indication: TEETHING
     Dosage: 1-2X PER DAY
     Route: 048

REACTIONS (3)
  - Product packaging issue [Unknown]
  - Wrong technique in product usage process [Unknown]
  - Drug administration error [Unknown]
